FAERS Safety Report 5084040-8 (Version None)
Quarter: 2006Q3

REPORT INFORMATION
  Report Type: 
  Country: None (occurrence: None)
  Receive Date: 20060819
  Receipt Date: 20051128
  Transmission Date: 20061208
  Serious: Yes (Hospitalization)
  Sender: FDA-Public Use
  Company Number: NL-BOEHRINGER INGELHEIM PHARMACEUTICALS, INC.-2006-NL-00079NL

PATIENT

DRUGS (11)
  1. ATROVENT [Suspect]
     Dosage: 4-6DD1
  2. LISINOPRIL [Concomitant]
  3. FORMOTEROL [Concomitant]
     Dosage: 12UG/DO 2DD1
  4. HYDROCHLOROTHIAZIDE [Concomitant]
  5. ACETYLSALICYLIC ACID SRT [Concomitant]
  6. TEMAZEPAM [Concomitant]
     Dosage: PRN
  7. FENTANYL [Concomitant]
  8. ACETYLCYSTEINE [Concomitant]
  9. PREDNISOLONE [Concomitant]
  10. COTRIM [Concomitant]
     Dosage: STRENGTH: 160/800MG
  11. CODEINE [Concomitant]
     Dosage: PRN

REACTIONS (3)
  - CAROTID ARTERY STENOSIS [None]
  - CEREBRAL ISCHAEMIA [None]
  - CEREBROVASCULAR ACCIDENT [None]
